FAERS Safety Report 7768479-5 (Version None)
Quarter: 2011Q3

REPORT INFORMATION
  Report Type: 
  Country: None (occurrence: None)
  Receive Date: 20110922
  Receipt Date: 20110209
  Transmission Date: 20111222
  Serious: Yes (Hospitalization, Other)
  Sender: FDA-Public Use
  Company Number: US-ASTRAZENECA-2007UW05828

PATIENT
  Age: 16567 Day
  Sex: Female
  Weight: 68 kg

DRUGS (5)
  1. SEROQUEL [Suspect]
     Indication: DEPRESSION
     Dosage: 400 MG-1200 MG
     Route: 048
     Dates: start: 20020101, end: 20070101
  2. ABILIFY [Concomitant]
     Dates: start: 20030101, end: 20040101
  3. HALDOL [Concomitant]
     Dates: start: 20070101
  4. SEROQUEL [Suspect]
     Indication: BIPOLAR DISORDER
     Dosage: 400 MG-1200 MG
     Route: 048
     Dates: start: 20020101, end: 20070101
  5. ZYPREXA [Concomitant]

REACTIONS (2)
  - PANCREATITIS [None]
  - PAIN [None]
